FAERS Safety Report 13699615 (Version 1)
Quarter: 2017Q2

REPORT INFORMATION
  Report Type: Report from Study
  Country: NL (occurrence: NL)
  Receive Date: 20170629
  Receipt Date: 20170629
  Transmission Date: 20170830
  Serious: Yes (Other)
  Sender: FDA-Public Use
  Company Number: NL-BAXTER-2017BAX026027

PATIENT
  Sex: Female

DRUGS (15)
  1. HOLOXAN, POEDER VOOR OPLOSSING VOOR INFUSIE [Suspect]
     Active Substance: IFOSFAMIDE
     Indication: OVARIAN EMBRYONAL CARCINOMA
     Dosage: VIP REGIMEN
     Route: 065
     Dates: start: 1991
  2. HOLOXAN, POEDER VOOR OPLOSSING VOOR INFUSIE [Suspect]
     Active Substance: IFOSFAMIDE
     Indication: METASTASES TO BONE
  3. BLEOMYCIN [Suspect]
     Active Substance: BLEOMYCIN SULFATE
     Indication: OVARIAN EMBRYONAL CARCINOMA
     Dosage: BEP REGIMEN
     Route: 065
     Dates: start: 1991
  4. HOLOXAN, POEDER VOOR OPLOSSING VOOR INFUSIE [Suspect]
     Active Substance: IFOSFAMIDE
     Indication: METASTASES TO LUNG
  5. CISPLATIN. [Suspect]
     Active Substance: CISPLATIN
     Indication: METASTASES TO LUNG
  6. BLEOMYCIN [Suspect]
     Active Substance: BLEOMYCIN SULFATE
     Indication: METASTASES TO LUNG
  7. ETOPOSIDE. [Suspect]
     Active Substance: ETOPOSIDE
     Indication: OVARIAN EMBRYONAL CARCINOMA
     Dosage: BEP REGIMEN
     Route: 065
     Dates: start: 1991
  8. BLEOMYCIN [Suspect]
     Active Substance: BLEOMYCIN SULFATE
     Indication: METASTASES TO BONE
  9. VINBLASTINE [Suspect]
     Active Substance: VINBLASTINE
     Indication: METASTASES TO BONE
  10. CISPLATIN. [Suspect]
     Active Substance: CISPLATIN
     Indication: OVARIAN EMBRYONAL CARCINOMA
     Dosage: VIP REGIMEN
     Route: 065
     Dates: start: 1991
  11. ETOPOSIDE. [Suspect]
     Active Substance: ETOPOSIDE
     Indication: METASTASES TO LUNG
  12. VINBLASTINE [Suspect]
     Active Substance: VINBLASTINE
     Indication: OVARIAN EMBRYONAL CARCINOMA
     Dosage: VIP REGIMEN
     Route: 065
     Dates: start: 1991
  13. VINBLASTINE [Suspect]
     Active Substance: VINBLASTINE
     Indication: METASTASES TO LUNG
  14. CISPLATIN. [Suspect]
     Active Substance: CISPLATIN
     Indication: METASTASES TO BONE
     Dosage: BEP REGIMEN
     Route: 065
     Dates: start: 1991
  15. ETOPOSIDE. [Suspect]
     Active Substance: ETOPOSIDE
     Indication: METASTASES TO BONE

REACTIONS (4)
  - Bundle branch block left [Unknown]
  - Scoliosis [Unknown]
  - Paraplegia [Unknown]
  - Left ventricular dilatation [Unknown]
